FAERS Safety Report 15563991 (Version 5)
Quarter: 2019Q2

REPORT INFORMATION
  Report Type: Spontaneous
  Country: US (occurrence: US)
  Receive Date: 20181030
  Receipt Date: 20190508
  Transmission Date: 20190711
  Serious: Yes (Hospitalization, Other)
  Sender: FDA-Public Use
  Company Number: US-BRISTOL-MYERS SQUIBB COMPANY-BMS-2018-101440

PATIENT
  Sex: Female
  Weight: 108.84 kg

DRUGS (2)
  1. ORENCIA [Suspect]
     Active Substance: ABATACEPT
     Indication: PRODUCT USED FOR UNKNOWN INDICATION
     Dosage: 125 MG, QWK
     Route: 058
     Dates: start: 201902
  2. ORENCIA [Suspect]
     Active Substance: ABATACEPT
     Indication: RHEUMATOID ARTHRITIS
     Dosage: 125 MG, QWK
     Route: 058
     Dates: start: 201810

REACTIONS (6)
  - Escherichia infection [Unknown]
  - Chronic obstructive pulmonary disease [Unknown]
  - Kidney infection [Not Recovered/Not Resolved]
  - Oral candidiasis [Unknown]
  - Cystitis [Not Recovered/Not Resolved]
  - Pulmonary oedema [Unknown]
